FAERS Safety Report 13082240 (Version 7)
Quarter: 2017Q1

REPORT INFORMATION
  Report Type: Spontaneous
  Country: US (occurrence: US)
  Receive Date: 20170103
  Receipt Date: 20170308
  Transmission Date: 20170428
  Serious: No
  Sender: FDA-Public Use
  Company Number: US-PFIZER INC-2016559637

PATIENT
  Age: 72 Year
  Sex: Female
  Weight: 61 kg

DRUGS (8)
  1. SUTENT [Suspect]
     Active Substance: SUNITINIB MALATE
     Indication: SARCOMA
     Dosage: 37.5 MG, DAILY
     Dates: start: 20161209, end: 20170201
  2. FERROUS SULFATE. [Concomitant]
     Active Substance: FERROUS SULFATE
     Dosage: UNK
  3. ZOFRAN [Concomitant]
     Active Substance: ONDANSETRON HYDROCHLORIDE
     Dosage: UNK
  4. FOLIC ACID. [Concomitant]
     Active Substance: FOLIC ACID
     Dosage: UNK
  5. FENTANYL. [Concomitant]
     Active Substance: FENTANYL
     Dosage: UNK
  6. CALCIUM [Concomitant]
     Active Substance: CALCIUM
     Dosage: UNK
  7. JINTELI [Concomitant]
     Active Substance: ETHINYL ESTRADIOL\NORETHINDRONE ACETATE
     Indication: HORMONE THERAPY
     Dosage: UNK
  8. BIOTIN [Concomitant]
     Active Substance: BIOTIN
     Dosage: UNK

REACTIONS (30)
  - Joint swelling [Unknown]
  - Arthropathy [Unknown]
  - Diarrhoea [Unknown]
  - Peripheral swelling [Unknown]
  - Arthritis [Unknown]
  - Product use issue [Unknown]
  - Skin injury [Unknown]
  - Rhinorrhoea [Unknown]
  - Pain in extremity [Unknown]
  - Skin atrophy [Unknown]
  - Fatigue [Unknown]
  - Lacrimation increased [Unknown]
  - Dysgeusia [Unknown]
  - Weight increased [Unknown]
  - White blood cell count decreased [Unknown]
  - Arthralgia [Unknown]
  - Poor quality sleep [Unknown]
  - Stress [Unknown]
  - Bedridden [Unknown]
  - Weight decreased [Unknown]
  - Neoplasm progression [Unknown]
  - Aggression [Unknown]
  - Pain [Unknown]
  - Sneezing [Unknown]
  - Increased appetite [Unknown]
  - Skin wrinkling [Unknown]
  - Nocturia [Unknown]
  - Nasopharyngitis [Unknown]
  - Nodule [Unknown]
  - Red blood cell count increased [Unknown]

NARRATIVE: CASE EVENT DATE: 20161209
